FAERS Safety Report 5938359-6 (Version None)
Quarter: 2008Q4

REPORT INFORMATION
  Report Type: 
  Country: None (occurrence: None)
  Receive Date: 20081103
  Receipt Date: 20081029
  Transmission Date: 20090506
  Serious: Yes (Other)
  Sender: FDA-Public Use
  Company Number: US-ASTRAZENECA-2008UW19703

PATIENT
  Age: 23434 Day
  Sex: Female
  Weight: 64.4 kg

DRUGS (7)
  1. SYMBICORT [Suspect]
     Indication: DYSPNOEA
     Dosage: 160/4.5 UG, 2 INHALATIONS BID
     Route: 055
     Dates: start: 20080915, end: 20080917
  2. NASONEX [Concomitant]
  3. ASTELIN [Concomitant]
  4. SUDAFED 12 HOUR [Concomitant]
  5. SUDAFED S.A. [Concomitant]
     Indication: RHINITIS
  6. MUCINEX [Concomitant]
     Indication: RHINITIS
  7. ZOCOR [Concomitant]
     Indication: HYPERCHOLESTEROLAEMIA

REACTIONS (3)
  - CHEST PAIN [None]
  - HEADACHE [None]
  - MYALGIA [None]
